FAERS Safety Report 5903146-1 (Version None)
Quarter: 2008Q3

REPORT INFORMATION
  Report Type: 
  Country: None (occurrence: None)
  Receive Date: 20080930
  Receipt Date: 20080925
  Transmission Date: 20090109
  Serious: Yes (Other)
  Sender: FDA-Public Use
  Company Number: US-ELI_LILLY_AND_COMPANY-US200809006052

PATIENT
  Sex: Female

DRUGS (11)
  1. HUMALOG [Suspect]
     Indication: DIABETES MELLITUS
     Dosage: UNK, UNK
     Dates: start: 20010101
  2. HUMALOG [Suspect]
  3. CYMBALTA [Concomitant]
     Dates: start: 20060301
  4. SYMLIN [Concomitant]
  5. AVALIDE [Concomitant]
  6. AGGRENOX [Concomitant]
  7. GABAPENTIN [Concomitant]
  8. GLYCOPYRROLATE [Concomitant]
  9. VITAMINS [Concomitant]
  10. LIPITOR [Concomitant]
  11. ZETIA [Concomitant]

REACTIONS (9)
  - BLINDNESS UNILATERAL [None]
  - BLOOD GLUCOSE INCREASED [None]
  - CEREBROVASCULAR ACCIDENT [None]
  - DRUG DISPENSING ERROR [None]
  - GLYCOSYLATED HAEMOGLOBIN INCREASED [None]
  - HEADACHE [None]
  - HYPOACUSIS [None]
  - IRRITABLE BOWEL SYNDROME [None]
  - OPTIC NERVE INJURY [None]
